FAERS Safety Report 6870285-0 (Version None)
Quarter: 2010Q3

REPORT INFORMATION
  Report Type: 
  Country: None (occurrence: None)
  Receive Date: 20100723
  Receipt Date: 20100715
  Transmission Date: 20110219
  Serious: No
  Sender: FDA-Public Use
  Company Number: US-BIOGENIDEC-2010BI023750

PATIENT
  Sex: Male

DRUGS (1)
  1. TYSABRI [Suspect]
     Indication: MULTIPLE SCLEROSIS
     Route: 042
     Dates: start: 20091221

REACTIONS (5)
  - ARTHRITIS [None]
  - EXOSTOSIS [None]
  - FOOT FRACTURE [None]
  - PAIN IN EXTREMITY [None]
  - TENDON INJURY [None]
